FAERS Safety Report 7602168-2 (Version None)
Quarter: 2011Q3

REPORT INFORMATION
  Report Type: 
  Country: None (occurrence: None)
  Receive Date: 20110711
  Receipt Date: 20110630
  Transmission Date: 20111222
  Serious: Yes (Other)
  Sender: FDA-Public Use
  Company Number: US-CELGENEUS-163-21880-11070205

PATIENT
  Sex: Male

DRUGS (7)
  1. FINASTERIDE [Concomitant]
     Route: 065
  2. REVLIMID [Suspect]
     Dosage: 25 MILLIGRAM
     Route: 048
     Dates: start: 20110121
  3. FELODIPINE [Concomitant]
     Route: 065
  4. LEXAPRO [Concomitant]
     Route: 065
  5. LOVAZA [Concomitant]
     Route: 065
  6. OMEPRAZOLE [Concomitant]
     Route: 065
  7. SIMVASTATIN [Concomitant]
     Route: 065

REACTIONS (1)
  - HAEMOPTYSIS [None]
